FAERS Safety Report 16000641 (Version 1)
Quarter: 2019Q1

REPORT INFORMATION
  Report Type: Spontaneous
  Country: CN (occurrence: CN)
  Receive Date: 20190225
  Receipt Date: 20190225
  Transmission Date: 20190418
  Serious: Yes (Hospitalization)
  Sender: FDA-Public Use
  Company Number: CN-PFIZER INC-2019075963

PATIENT
  Age: 56 Year
  Sex: Male
  Weight: 49 kg

DRUGS (2)
  1. PACLITAXEL. [Suspect]
     Active Substance: PACLITAXEL
     Dosage: 210 MG, 1X/DAY
     Route: 041
     Dates: start: 20181214, end: 20181214
  2. PACLITAXEL. [Suspect]
     Active Substance: PACLITAXEL
     Dosage: 20 MG, 1X/DAY
     Route: 033
     Dates: start: 20181221, end: 20181221

REACTIONS (1)
  - Bone marrow disorder [Recovering/Resolving]

NARRATIVE: CASE EVENT DATE: 20181226
